FAERS Safety Report 5043321-4 (Version None)
Quarter: 2006Q3

REPORT INFORMATION
  Report Type: 
  Country: None (occurrence: None)
  Receive Date: 20060703
  Receipt Date: 20060703
  Transmission Date: 20061208
  Serious: Yes (Life-Threatening, Hospitalization)
  Sender: FDA-Public Use
  Company Number: None

PATIENT
  Age: 64 Year
  Sex: Male
  Weight: 55.1 kg

DRUGS (15)
  1. LISINOPRIL [Suspect]
  2. LORATADINE [Concomitant]
  3. DIPHENHYDRAMINE HCL [Concomitant]
  4. RANITIDINE [Concomitant]
  5. METHYLPREDNISOLONE [Concomitant]
  6. LORATADINE [Concomitant]
  7. HYDROCHLOROTHIAZIDE [Concomitant]
  8. MULTI-VITAMIN [Concomitant]
  9. THIAMINE [Concomitant]
  10. FOLIC ACID [Concomitant]
  11. GLYBURIDE AND METFORMIN HCL [Concomitant]
  12. FLUNISOLIDE IHN [Concomitant]
  13. OMEPRAZOLE [Concomitant]
  14. ASPIRIN [Concomitant]
  15. LISINOPRIL [Concomitant]

REACTIONS (1)
  - ANGIONEUROTIC OEDEMA [None]
